FAERS Safety Report 19080995 (Version 2)
Quarter: 2021Q2

REPORT INFORMATION
  Report Type: Spontaneous
  Country: JP (occurrence: JP)
  Receive Date: 20210401
  Receipt Date: 20210402
  Transmission Date: 20210717
  Serious: Yes (Hospitalization)
  Sender: FDA-Public Use
  Company Number: JP-ASTRAZENECA-2021A056509

PATIENT
  Age: 75 Year
  Sex: Female
  Weight: 47 kg

DRUGS (4)
  1. IMFINZI [Suspect]
     Active Substance: DURVALUMAB
     Indication: SMALL CELL LUNG CANCER
     Route: 041
     Dates: start: 20210113
  2. CISPLATIN. [Concomitant]
     Active Substance: CISPLATIN
     Indication: SMALL CELL LUNG CANCER
     Dosage: DOSE UNKNOWN EVERY THREE WEEKS
     Route: 065
     Dates: start: 20210113
  3. ETOPOSIDE. [Concomitant]
     Active Substance: ETOPOSIDE
     Indication: SMALL CELL LUNG CANCER
     Dosage: FULL DOSE
     Route: 065
     Dates: start: 20191007, end: 20200109
  4. ETOPOSIDE. [Concomitant]
     Active Substance: ETOPOSIDE
     Indication: SMALL CELL LUNG CANCER
     Dosage: DOSE UNKNOWN, ON DAY 1, 2 AND 3 OF EACH CYCLE, EVERY THREE WEEKS
     Route: 065
     Dates: start: 20210113

REACTIONS (1)
  - Adrenocorticotropic hormone deficiency [Recovering/Resolving]

NARRATIVE: CASE EVENT DATE: 20210119
